FAERS Safety Report 17293781 (Version 1)
Quarter: 2020Q1

REPORT INFORMATION
  Report Type: Spontaneous
  Country: US (occurrence: US)
  Receive Date: 20200120
  Receipt Date: 20200120
  Transmission Date: 20200409
  Serious: Yes (Life-Threatening, Hospitalization, Disabling)
  Sender: FDA-Public Use
  Company Number: None

PATIENT
  Age: 61 Year
  Sex: Female
  Weight: 108.45 kg

DRUGS (2)
  1. LOW DOSE LEVOTHYROXINE [Concomitant]
  2. DOXICYCLINE HYCLATE 100MG CAPSULES [Suspect]
     Active Substance: DOXYCYCLINE HYCLATE
     Indication: SINUSITIS
     Dosage: ?          QUANTITY:1 CAPSULE(S);?
     Route: 048
     Dates: start: 20191230, end: 20200102

REACTIONS (3)
  - Vision blurred [None]
  - Intracranial pressure increased [None]
  - Optic nerve compression [None]

NARRATIVE: CASE EVENT DATE: 20200102
